FAERS Safety Report 13581271 (Version 1)
Quarter: 2017Q2

REPORT INFORMATION
  Report Type: Spontaneous
  Country: US (occurrence: US)
  Receive Date: 20170525
  Receipt Date: 20170525
  Transmission Date: 20170830
  Serious: Yes (Death, Life-Threatening, Hospitalization)
  Sender: FDA-Public Use
  Company Number: None

PATIENT
  Age: 56 Year
  Sex: Male
  Weight: 81 kg

DRUGS (1)
  1. GILOTRIF [Suspect]
     Active Substance: AFATINIB

REACTIONS (1)
  - Interstitial lung disease [None]

NARRATIVE: CASE EVENT DATE: 20170427
